FAERS Safety Report 8349985-1 (Version None)
Quarter: 2012Q2

REPORT INFORMATION
  Report Type: 
  Country: None (occurrence: None)
  Receive Date: 20120510
  Receipt Date: 20120508
  Transmission Date: 20120825
  Serious: Yes (Other)
  Sender: FDA-Public Use
  Company Number: US-PFIZER INC-2012113304

PATIENT
  Age: 21 Year
  Sex: Female

DRUGS (2)
  1. METHOTREXATE SODIUM [Suspect]
     Route: 037
  2. CYTARABINE [Suspect]
     Route: 037

REACTIONS (3)
  - APHASIA [None]
  - HEMIPARESIS [None]
  - LEUKOENCEPHALOPATHY [None]
